FAERS Safety Report 5524004-0 (Version None)
Quarter: 2007Q4

REPORT INFORMATION
  Report Type: 
  Country: None (occurrence: None)
  Receive Date: 20071119
  Receipt Date: 20071108
  Transmission Date: 20080405
  Serious: Yes (Hospitalization)
  Sender: FDA-Public Use
  Company Number: 2007-03762

PATIENT
  Age: 54 Year
  Sex: Male
  Weight: 90 kg

DRUGS (9)
  1. VELCADE [Suspect]
     Indication: MULTIPLE MYELOMA
  2. ADRIAMYCIN RDF [Suspect]
     Indication: MULTIPLE MYELOMA
  3. DEXAMETHASONE [Suspect]
     Indication: MULTIPLE MYELOMA
  4. PREDNISONE [Concomitant]
  5. TRAMADOL HYDROHLORIDE [Concomitant]
  6. PANTOZOL (PANTOPRAZOLE SODIUM) [Concomitant]
  7. ACYCLOVIR [Concomitant]
  8. CIPROFLOXACIN HCL [Concomitant]
  9. METRONIDAZOLE [Concomitant]

REACTIONS (2)
  - PNEUMOTHORAX [None]
  - RIB FRACTURE [None]
